FAERS Safety Report 25641530 (Version 5)
Quarter: 2025Q4

REPORT INFORMATION
  Report Type: Report from Study
  Country: US (occurrence: US)
  Receive Date: 20250804
  Receipt Date: 20251006
  Transmission Date: 20260118
  Serious: Yes (Life-Threatening, Other)
  Sender: IOVANCE BIOTHERAPEUTICS MANUFACTURING LLC
  Company Number: US-IOVANCE BIOTHERAPEUTICS INC.-IOV2025000063

PATIENT
  Age: 70 Year
  Sex: Female

DRUGS (24)
  1. ALDESLEUKIN [Suspect]
     Active Substance: ALDESLEUKIN
     Indication: Malignant melanoma
     Dosage: 44 10^6 IU
     Route: 042
     Dates: start: 20250714, end: 20250714
  2. ALDESLEUKIN [Suspect]
     Active Substance: ALDESLEUKIN
     Dosage: 44 10^6 IU
     Route: 042
     Dates: start: 20250715, end: 20250715
  3. ALDESLEUKIN [Suspect]
     Active Substance: ALDESLEUKIN
     Dosage: 44 10^6 IU
     Route: 042
     Dates: start: 20250715, end: 20250715
  4. ALDESLEUKIN [Suspect]
     Active Substance: ALDESLEUKIN
     Dosage: 44 10^6 IU
     Route: 042
     Dates: start: 20250716, end: 20250716
  5. ALDESLEUKIN [Suspect]
     Active Substance: ALDESLEUKIN
     Dosage: 44 10^6 IU
     Route: 042
     Dates: start: 20250716, end: 20250716
  6. ALDESLEUKIN [Suspect]
     Active Substance: ALDESLEUKIN
     Dosage: 44 10^6 IU
     Route: 042
     Dates: start: 20250717, end: 20250717
  7. CYCLOPHOSPHAMIDE [Suspect]
     Active Substance: CYCLOPHOSPHAMIDE
     Indication: Malignant melanoma
     Dosage: 4540 MILLIGRAM
     Route: 042
     Dates: start: 20250709, end: 20250710
  8. CYCLOPHOSPHAMIDE [Suspect]
     Active Substance: CYCLOPHOSPHAMIDE
     Dosage: 4540 MILLIGRAM
     Route: 042
     Dates: start: 20250710
  9. FLUDARABINE [Suspect]
     Active Substance: FLUDARABINE PHOSPHATE
     Indication: Malignant melanoma
     Dosage: 37 MILLIGRAM
     Route: 042
     Dates: start: 20250709, end: 20250713
  10. FLUDARABINE [Suspect]
     Active Substance: FLUDARABINE PHOSPHATE
     Dosage: 37 MILLIGRAM
     Route: 042
     Dates: start: 20250710
  11. FLUDARABINE [Suspect]
     Active Substance: FLUDARABINE PHOSPHATE
     Dosage: 37 MILLIGRAM
     Route: 042
     Dates: start: 20250711
  12. FLUDARABINE [Suspect]
     Active Substance: FLUDARABINE PHOSPHATE
     Dosage: 37 MILLIGRAM
     Route: 042
     Dates: start: 20250712
  13. FLUDARABINE [Suspect]
     Active Substance: FLUDARABINE PHOSPHATE
     Dosage: 37 MILLIGRAM
     Route: 042
     Dates: start: 20250713
  14. LIFILEUCEL [Suspect]
     Active Substance: LIFILEUCEL
     Indication: Malignant melanoma
     Dosage: UNK
     Route: 042
     Dates: start: 20250714, end: 20250714
  15. SODIUM FLUORIDE [Concomitant]
     Active Substance: SODIUM FLUORIDE
     Indication: Supplementation therapy
     Dosage: THIN LINE ON TOOTHBRUSH NIGHTLY,QD
     Route: 048
     Dates: start: 20250514
  16. COREG [Concomitant]
     Active Substance: CARVEDILOL
     Indication: Arteriosclerosis
     Dosage: 1 DOSAGE FORM, BID
     Route: 048
     Dates: start: 20231223
  17. COZAAR [Concomitant]
     Active Substance: LOSARTAN POTASSIUM
     Indication: Hypertension
     Dosage: 1 DOSAGE FORM, QD
     Route: 048
     Dates: start: 20241223
  18. NORVASC [Concomitant]
     Active Substance: AMLODIPINE BESYLATE
     Indication: Hypertension
     Dosage: 5 MILLIGRAM, QD
     Route: 048
     Dates: start: 20241218
  19. ECOTRIN [Concomitant]
     Active Substance: ASPIRIN
     Indication: Prophylaxis
     Dosage: 81 MILLIGRAM, QD
     Route: 048
     Dates: start: 20241021
  20. CRESTOR [Concomitant]
     Active Substance: ROSUVASTATIN CALCIUM
     Indication: Hypercholesterolaemia
     Dosage: 40 MILLIGRAM, QD
     Route: 042
     Dates: start: 20240906
  21. CRESTOR [Concomitant]
     Active Substance: ROSUVASTATIN CALCIUM
     Dosage: UNK
  22. PROTONIX [Concomitant]
     Active Substance: PANTOPRAZOLE SODIUM
     Indication: Gastrooesophageal reflux disease
     Dosage: 40 MILLIGRAM, QD
     Route: 048
     Dates: start: 20240906
  23. PROTONIX [Concomitant]
     Active Substance: PANTOPRAZOLE SODIUM
     Indication: Oesophagitis
  24. PSYLLIUM HUSK [Concomitant]
     Active Substance: PSYLLIUM HUSK
     Indication: Product used for unknown indication
     Dosage: UNK
     Route: 048
     Dates: start: 20250120

REACTIONS (3)
  - Respiratory failure [Recovered/Resolved]
  - Somnolence [Recovered/Resolved]
  - Acute kidney injury [Recovered/Resolved]

NARRATIVE: CASE EVENT DATE: 20250718
